FAERS Safety Report 24993735 (Version 1)
Quarter: 2025Q1

REPORT INFORMATION
  Report Type: Spontaneous
  Country: IL (occurrence: IL)
  Receive Date: 20250221
  Receipt Date: 20250221
  Transmission Date: 20250409
  Serious: Yes (Hospitalization, Other)
  Sender: BRISTOL-MYERS SQUIBB COMPANY
  Company Number: IL-BRISTOL-MYERS SQUIBB COMPANY-2025-023714

PATIENT
  Age: 56 Year
  Sex: Male

DRUGS (3)
  1. NIVOLUMAB [Suspect]
     Active Substance: NIVOLUMAB
     Indication: Non-small cell lung cancer stage III
     Dosage: DOSE : ACCORDING TO 816 CHECKMATE;     FREQ : QW3
  2. PACLITAXEL [Suspect]
     Active Substance: PACLITAXEL
     Indication: Non-small cell lung cancer stage III
     Dosage: PACLITAXEL 390 MG+ SODIUM CHLORIDE 0.9% 500 CC?TIMING FROM DOSAGE FORM?DURATION: 3 HOUR TOTAL VOLUME
  3. CISPLATIN [Suspect]
     Active Substance: CISPLATIN
     Indication: Non-small cell lung cancer stage III
     Dosage: CISPLATIN 90 MG+SODIUM CHLORIDE 0.9% 1000 CC?TIMING FROM DOSAGE FORM DURATION: 1 HOUR TOTAL VOLUME:

REACTIONS (5)
  - Neuropathy peripheral [Not Recovered/Not Resolved]
  - Postoperative wound complication [Recovering/Resolving]
  - Sepsis [Recovered/Resolved]
  - Osteomyelitis [Recovered/Resolved]
  - Vocal cord paralysis [Unknown]
